FAERS Safety Report 18494107 (Version 1)
Quarter: 2020Q4

REPORT INFORMATION
  Report Type: Spontaneous
  Country: US (occurrence: US)
  Receive Date: 20201112
  Receipt Date: 20201112
  Transmission Date: 20210114
  Serious: No
  Sender: FDA-Public Use
  Company Number: US-CIPLA LTD.-2020US04407

PATIENT

DRUGS (5)
  1. CLARITIN [Concomitant]
     Active Substance: LORATADINE
     Indication: SEASONAL ALLERGY
     Dosage: UNK, RARELY, WHEN IT FLARES
     Route: 065
  2. GABAPENTIN. [Suspect]
     Active Substance: GABAPENTIN
     Dosage: 300 MILLIGRAM, TID (ONE CASPULE THREE TIMES A DAY)
     Route: 048
     Dates: start: 20200611, end: 202006
  3. CLARITIN [Concomitant]
     Active Substance: LORATADINE
     Indication: CONDITION AGGRAVATED
  4. GABAPENTIN. [Suspect]
     Active Substance: GABAPENTIN
     Dosage: 300 MILLIGRAM, TID, OLD BATCH
     Route: 048
     Dates: start: 202006
  5. GABAPENTIN. [Suspect]
     Active Substance: GABAPENTIN
     Indication: NEUROPATHY PERIPHERAL
     Dosage: 300 MILLIGRAM, TID, SINCE A NUMBER OF YEARS
     Route: 048

REACTIONS (8)
  - Drug ineffective for unapproved indication [Unknown]
  - Irritability [Unknown]
  - Off label use [Unknown]
  - Headache [Unknown]
  - Product quality issue [Unknown]
  - Product use in unapproved indication [Unknown]
  - Nervousness [Unknown]
  - Dizziness [Unknown]

NARRATIVE: CASE EVENT DATE: 20200611
